FAERS Safety Report 5059458-X (Version None)
Quarter: 2006Q2

REPORT INFORMATION
  Report Type: 
  Country: None (occurrence: None)
  Receive Date: 20060629
  Receipt Date: 20060309
  Transmission Date: 20061013
  Serious: No
  Sender: FDA-Public Use
  Company Number: PHEH2006US03242

PATIENT
  Age: 79 Year
  Sex: Male

DRUGS (2)
  1. ENABLEX [Suspect]
     Indication: HYPERTONIC BLADDER
     Dosage: 15 MG, QD, ORAL;  7.5 MG, QD, ORAL
     Route: 048
     Dates: start: 20050401, end: 20050401
  2. ENABLEX [Suspect]
     Indication: HYPERTONIC BLADDER
     Dosage: 15 MG, QD, ORAL;  7.5 MG, QD, ORAL
     Route: 048
     Dates: start: 20050401

REACTIONS (5)
  - BLOOD URINE PRESENT [None]
  - DRUG INEFFECTIVE [None]
  - DRY MOUTH [None]
  - NEPHROLITHIASIS [None]
  - URINARY TRACT INFECTION [None]
